FAERS Safety Report 15467083 (Version 4)
Quarter: 2022Q1

REPORT INFORMATION
  Report Type: Spontaneous
  Country: US (occurrence: US)
  Receive Date: 20181005
  Receipt Date: 20220312
  Transmission Date: 20220423
  Serious: No
  Sender: FDA-Public Use
  Company Number: US-CELGENE-USA-20180910744

PATIENT
  Sex: Male
  Weight: 76 kg

DRUGS (16)
  1. THALOMID [Suspect]
     Active Substance: THALIDOMIDE
     Indication: Angiodysplasia
     Dosage: 100 MILLIGRAM
     Route: 048
     Dates: start: 201801
  2. THALOMID [Suspect]
     Active Substance: THALIDOMIDE
     Indication: Gastrointestinal vascular malformation haemorrhagic
     Dosage: 100 MILLIGRAM
     Route: 048
     Dates: start: 20180217
  3. THALOMID [Suspect]
     Active Substance: THALIDOMIDE
     Indication: Angiopathy
     Dosage: 100 MILLIGRAM
     Route: 048
     Dates: start: 201804
  4. THALOMID [Suspect]
     Active Substance: THALIDOMIDE
     Indication: Acquired Von Willebrand^s disease
     Dosage: 100 MILLIGRAM
     Route: 048
     Dates: start: 20180808
  5. THALOMID [Suspect]
     Active Substance: THALIDOMIDE
     Indication: Nephropathy
     Dosage: 50 MILLIGRAM
     Route: 048
     Dates: start: 201811
  6. THALOMID [Suspect]
     Active Substance: THALIDOMIDE
     Indication: Off label use
     Dosage: 50 MILLIGRAM
     Route: 048
     Dates: start: 201907
  7. THALOMID [Suspect]
     Active Substance: THALIDOMIDE
     Dosage: 50 MILLIGRAM
     Route: 048
     Dates: start: 202002
  8. THALOMID [Suspect]
     Active Substance: THALIDOMIDE
     Dosage: 50 MILLIGRAM
     Route: 048
     Dates: start: 202008
  9. THALOMID [Suspect]
     Active Substance: THALIDOMIDE
     Dosage: 50 MILLIGRAM
     Route: 048
     Dates: start: 202102
  10. THALOMID [Suspect]
     Active Substance: THALIDOMIDE
     Dosage: 50 MILLIGRAM
     Route: 048
     Dates: start: 202108
  11. THALOMID [Suspect]
     Active Substance: THALIDOMIDE
     Dosage: 50 MILLIGRAM
     Route: 048
     Dates: start: 202203
  12. Levoceterizine [Concomitant]
     Indication: Product used for unknown indication
     Route: 065
  13. BUPROPION [Concomitant]
     Active Substance: BUPROPION
     Indication: Product used for unknown indication
     Route: 065
  14. ALPRAZOLAM [Concomitant]
     Active Substance: ALPRAZOLAM
     Indication: Product used for unknown indication
     Route: 065
  15. PEPCID [Concomitant]
     Active Substance: FAMOTIDINE
     Indication: Product used for unknown indication
     Route: 065
  16. WELLBUTRIN [Concomitant]
     Active Substance: BUPROPION HYDROCHLORIDE
     Indication: Product used for unknown indication
     Route: 065

REACTIONS (6)
  - Photosensitivity reaction [Not Recovered/Not Resolved]
  - Neuropathy peripheral [Not Recovered/Not Resolved]
  - Bradycardia [Unknown]
  - Rash [Unknown]
  - Pain [Unknown]
  - Somnolence [Unknown]

NARRATIVE: CASE EVENT DATE: 20180101
